FAERS Safety Report 13016122 (Version 3)
Quarter: 2017Q3

REPORT INFORMATION
  Report Type: Spontaneous
  Country: US (occurrence: US)
  Receive Date: 20161212
  Receipt Date: 20170707
  Transmission Date: 20171127
  Serious: Yes (Hospitalization)
  Sender: FDA-Public Use
  Company Number: US-JNJFOC-20161117772

PATIENT
  Age: 83 Year
  Sex: Female

DRUGS (2)
  1. XARELTO [Suspect]
     Active Substance: RIVAROXABAN
     Indication: PROPHYLAXIS
     Dosage: VARYING DOSES OF 15 OR 20 MG
     Route: 048
     Dates: start: 201601, end: 20160210
  2. XARELTO [Suspect]
     Active Substance: RIVAROXABAN
     Indication: DEEP VEIN THROMBOSIS
     Dosage: VARYING DOSES OF 15 OR 20 MG
     Route: 048
     Dates: start: 201601, end: 20160210

REACTIONS (2)
  - Pericardial haemorrhage [Unknown]
  - Gastrointestinal haemorrhage [Unknown]

NARRATIVE: CASE EVENT DATE: 20160210
